FAERS Safety Report 21629959 (Version 1)
Quarter: 2022Q4

REPORT INFORMATION
  Report Type: Spontaneous
  Country: US (occurrence: US)
  Receive Date: 20221122
  Receipt Date: 20221122
  Transmission Date: 20230113
  Serious: No
  Sender: FDA-Public Use
  Company Number: US-SUNOVION-2022SUN003250AA

PATIENT
  Sex: Female

DRUGS (1)
  1. LATUDA [Suspect]
     Active Substance: LURASIDONE HYDROCHLORIDE
     Indication: Affective disorder
     Dosage: UNK
     Route: 048

REACTIONS (3)
  - Fluid retention [Recovered/Resolved]
  - Weight increased [Recovered/Resolved]
  - Off label use [Unknown]
